FAERS Safety Report 14716595 (Version 1)
Quarter: 2018Q2

REPORT INFORMATION
  Report Type: Other
  Country: US (occurrence: US)
  Receive Date: 20180404
  Receipt Date: 20180404
  Transmission Date: 20180711
  Serious: Yes (Life-Threatening)
  Sender: FDA-Public Use
  Company Number: US-CUMBERLAND PHARMACEUTICALS INC.-2045120

PATIENT
  Age: 56 Year
  Sex: Female

DRUGS (2)
  1. CRIZOTINIB [Suspect]
     Active Substance: CRIZOTINIB
     Dates: start: 2017, end: 2017
  2. ACETADOTE [Suspect]
     Active Substance: ACETYLCYSTEINE
     Indication: ACUTE HEPATIC FAILURE
     Dates: start: 2017, end: 2017

REACTIONS (3)
  - Seizure [Unknown]
  - Brain oedema [Unknown]
  - Subarachnoid haemorrhage [Unknown]

NARRATIVE: CASE EVENT DATE: 2017
